FAERS Safety Report 5535085-2 (Version None)
Quarter: 2007Q4

REPORT INFORMATION
  Report Type: 
  Country: None (occurrence: None)
  Receive Date: 20071203
  Receipt Date: 20071116
  Transmission Date: 20080405
  Serious: Yes (Hospitalization, Disabling)
  Sender: FDA-Public Use
  Company Number: 2007JP005074

PATIENT
  Age: 69 Year
  Sex: Female
  Weight: 51 kg

DRUGS (6)
  1. PROGRAF [Suspect]
     Indication: RHEUMATOID ARTHRITIS
     Dosage: 3 MG, UID/QD, ORAL
     Route: 048
  2. RHEUMATREX [Suspect]
     Dosage: 3 DF, WEEKLY, ORAL
     Route: 048
  3. HUMACART-N (INSULIN HUMAN) FORMULATION UNKNOWN [Concomitant]
  4. PREDNISOLONE [Suspect]
     Dosage: 1.5 DF, UID/QD, ORAL
     Route: 048
  5. PENFILL R (INSULIN HUMAN) FORMULATION UNKNOWN [Concomitant]
  6. HUMACART-N (INSULIN HUMAN) [Concomitant]

REACTIONS (3)
  - BRAIN ABSCESS [None]
  - BRAIN OEDEMA [None]
  - NOCARDIOSIS [None]
